FAERS Safety Report 23392790 (Version 2)
Quarter: 2024Q1

REPORT INFORMATION
  Report Type: Spontaneous
  Country: US (occurrence: US)
  Receive Date: 20240111
  Receipt Date: 20240215
  Transmission Date: 20240409
  Serious: No
  Sender: FDA-Public Use
  Company Number: US-VERTEX PHARMACEUTICALS-2024-000329

PATIENT
  Sex: Female

DRUGS (1)
  1. ORKAMBI [Suspect]
     Active Substance: IVACAFTOR\LUMACAFTOR
     Indication: Cystic fibrosis
     Route: 048

REACTIONS (6)
  - Hot flush [Unknown]
  - Polymenorrhoea [Unknown]
  - Influenza [Unknown]
  - Dysmenorrhoea [Unknown]
  - Arthralgia [Unknown]
  - Malaise [Unknown]
